FAERS Safety Report 8371637-2 (Version None)
Quarter: 2012Q2

REPORT INFORMATION
  Report Type: 
  Country: None (occurrence: None)
  Receive Date: 20120518
  Receipt Date: 20120515
  Transmission Date: 20120825
  Serious: Yes (Death)
  Sender: FDA-Public Use
  Company Number: US-CELGENEUS-163-21880-12051966

PATIENT
  Sex: Female

DRUGS (4)
  1. AMLODIPINE BESYLATE [Concomitant]
     Dosage: 2.5 MILLIGRAM
     Route: 065
     Dates: start: 20111003, end: 20120508
  2. DIOVAN [Concomitant]
     Dosage: 80 MILLIGRAM
     Route: 065
     Dates: start: 20110615, end: 20120508
  3. REVLIMID [Suspect]
     Dosage: 5 MILLIGRAM
     Route: 048
     Dates: start: 20100208, end: 20120508
  4. BYSTOLIC [Concomitant]
     Dosage: 5 MILLIGRAM
     Route: 065
     Dates: start: 20110615, end: 20120505

REACTIONS (1)
  - DEATH [None]
